FAERS Safety Report 24436157 (Version 2)
Quarter: 2024Q4

REPORT INFORMATION
  Report Type: Report from Study
  Country: US (occurrence: US)
  Receive Date: 20241015
  Receipt Date: 20241022
  Transmission Date: 20250115
  Serious: Yes (Life-Threatening, Hospitalization, Other)
  Sender: TERSERA THERAPEUTICS
  Company Number: US-TERSERA THERAPEUTICS LLC-2024TRS004877

PATIENT

DRUGS (6)
  1. GOSERELIN [Suspect]
     Active Substance: GOSERELIN
     Indication: Salivary gland cancer stage IV
     Dosage: 3.6 MG, EVERY 4 WEEKS
     Route: 058
     Dates: start: 20240124, end: 20240820
  2. GOSERELIN [Suspect]
     Active Substance: GOSERELIN
     Indication: Metastatic salivary gland cancer
  3. ZOLADEX [Suspect]
     Active Substance: GOSERELIN ACETATE
     Indication: Salivary gland cancer stage IV
     Dosage: UNK
     Route: 065
  4. ZOLADEX [Suspect]
     Active Substance: GOSERELIN ACETATE
     Indication: Metastatic salivary gland cancer
  5. PEMBROLIZUMAB [Suspect]
     Active Substance: PEMBROLIZUMAB
     Indication: Salivary gland cancer stage IV
     Dosage: 200 MG, EVERY 3 WEEKS
     Route: 042
     Dates: start: 20240227, end: 20240520
  6. PEMBROLIZUMAB [Suspect]
     Active Substance: PEMBROLIZUMAB
     Indication: Metastatic salivary gland cancer

REACTIONS (2)
  - Hypovolaemic shock [Not Recovered/Not Resolved]
  - Sepsis [Recovered/Resolved]

NARRATIVE: CASE EVENT DATE: 20240923
